FAERS Safety Report 10150679 (Version 2)
Quarter: 2014Q3

REPORT INFORMATION
  Report Type: Report from Study
  Country: IE (occurrence: IE)
  Receive Date: 20140502
  Receipt Date: 20140706
  Transmission Date: 20150326
  Serious: Yes (Other)
  Sender: FDA-Public Use
  Company Number: IE-BRISTOL-MYERS SQUIBB COMPANY-20668422

PATIENT
  Age: 63 Year
  Sex: Male

DRUGS (1)
  1. YERVOY [Suspect]
     Active Substance: IPILIMUMAB
     Route: 042
     Dates: start: 20140204, end: 20140415

REACTIONS (2)
  - Rash [Unknown]
  - Axillary mass [Unknown]
